FAERS Safety Report 9693371 (Version 1)
Quarter: 2013Q4

REPORT INFORMATION
  Report Type: Spontaneous
  Country: CA (occurrence: CA)
  Receive Date: 20131118
  Receipt Date: 20131118
  Transmission Date: 20140711
  Serious: Yes (Other)
  Sender: FDA-Public Use
  Company Number: CA-ROCHE-1301791

PATIENT
  Age: 56 Year
  Sex: Male
  Weight: 104.42 kg

DRUGS (7)
  1. CLONAZEPAM [Suspect]
     Indication: PRODUCT USED FOR UNKNOWN INDICATION
     Route: 048
  2. CIPRALEX [Suspect]
     Indication: PRODUCT USED FOR UNKNOWN INDICATION
     Route: 048
  3. SEROQUEL [Suspect]
     Indication: PRODUCT USED FOR UNKNOWN INDICATION
     Route: 048
  4. WELLBUTRIN XL [Suspect]
     Indication: PRODUCT USED FOR UNKNOWN INDICATION
     Route: 048
  5. ECHINACEA [Concomitant]
     Route: 048
  6. HORSE CHESTNUT EXTRACT [Concomitant]
     Route: 048
  7. MILK THISTLE [Concomitant]
     Route: 048

REACTIONS (14)
  - Erection increased [Unknown]
  - Suicidal ideation [Unknown]
  - Tinnitus [Unknown]
  - Tremor [Unknown]
  - Constipation [Unknown]
  - Dry mouth [Unknown]
  - Increased appetite [Unknown]
  - Weight increased [Unknown]
  - Dizziness [Unknown]
  - Fatigue [Unknown]
  - Nausea [Unknown]
  - Somnolence [Unknown]
  - Depression [Unknown]
  - Muscular weakness [Unknown]
